FAERS Safety Report 20784572 (Version 2)
Quarter: 2022Q2

REPORT INFORMATION
  Report Type: Report from Study
  Country: US (occurrence: US)
  Receive Date: 20220504
  Receipt Date: 20220523
  Transmission Date: 20220720
  Serious: Yes (Hospitalization)
  Sender: FDA-Public Use
  Company Number: US-NOVARTISTESTPH-NVSC2022US101745

PATIENT
  Age: 74 Year
  Sex: Female

DRUGS (1)
  1. PIQRAY [Suspect]
     Active Substance: ALPELISIB
     Indication: Breast cancer
     Dosage: 300 MG, QD
     Route: 048
     Dates: start: 202204

REACTIONS (8)
  - Hyperglycaemia [Recovered/Resolved]
  - Confusional state [Unknown]
  - Dry mouth [Unknown]
  - Fatigue [Unknown]
  - Speech disorder [Unknown]
  - Somnolence [Unknown]
  - Thinking abnormal [Unknown]
  - Rash [Unknown]

NARRATIVE: CASE EVENT DATE: 20220401
